FAERS Safety Report 23568986 (Version 1)
Quarter: 2024Q1

REPORT INFORMATION
  Report Type: Report from Study
  Country: US (occurrence: US)
  Receive Date: 20240227
  Receipt Date: 20240227
  Transmission Date: 20240410
  Serious: No
  Sender: FDA-Public Use
  Company Number: US-ORG100014127-2023000946

PATIENT
  Age: 28 Year
  Sex: Female

DRUGS (1)
  1. METOPIRONE [Suspect]
     Active Substance: METYRAPONE
     Indication: Metastases to adrenals
     Dosage: 250 MG: TAKE 2 CAPSULES BY MOUTH 3 TIMES A DAY
     Dates: start: 20230608

REACTIONS (1)
  - Off label use [Not Recovered/Not Resolved]

NARRATIVE: CASE EVENT DATE: 20230608
